FAERS Safety Report 13154797 (Version 1)
Quarter: 2017Q1

REPORT INFORMATION
  Report Type: Report from Study
  Country: US (occurrence: US)
  Receive Date: 20170126
  Receipt Date: 20170126
  Transmission Date: 20170428
  Serious: No
  Sender: FDA-Public Use
  Company Number: US-AMGEN-USASL2016165488

PATIENT
  Age: 76 Year
  Sex: Male

DRUGS (1)
  1. KYPROLIS [Suspect]
     Active Substance: CARFILZOMIB
     Indication: PLASMA CELL MYELOMA
     Dosage: 39 MG,  ON D1, D2, D8, D9, D15 AND D16 FOR 28 DAYS
     Route: 065

REACTIONS (1)
  - Cardiac disorder [Unknown]
